FAERS Safety Report 25048743 (Version 2)
Quarter: 2025Q1

REPORT INFORMATION
  Report Type: Report from Study
  Country: IN (occurrence: IN)
  Receive Date: 20250307
  Receipt Date: 20250325
  Transmission Date: 20250408
  Serious: Yes (Hospitalization, Disabling)
  Sender: CIPLA
  Company Number: IN-CIPLA LTD.-2025IN02677

PATIENT

DRUGS (4)
  1. SPIRONOLACTONE\TORSEMIDE [Suspect]
     Active Substance: SPIRONOLACTONE\TORSEMIDE
     Indication: Product used for unknown indication
     Dosage: 0.5 DOSAGE FORM, QD (OD), STRENGTH - 10/50 UNITS UNSPECIFIED
     Route: 048
     Dates: start: 202410
  2. WARFARIN [Suspect]
     Active Substance: WARFARIN
     Indication: Anticoagulant therapy
     Dosage: 1 DOSAGE FORM, QD (OD), STRENGTH - 2 UNITS UNSPECIFIED
     Route: 048
     Dates: start: 202410
  3. ASPIRIN DL-LYSINE [Concomitant]
     Active Substance: ASPIRIN DL-LYSINE
     Indication: Product used for unknown indication
     Route: 065
  4. BISOPROLOL FUMARATE [Concomitant]
     Active Substance: BISOPROLOL FUMARATE
     Indication: Product used for unknown indication
     Route: 065

REACTIONS (3)
  - Cerebral disorder [Not Recovered/Not Resolved]
  - Speech disorder [Not Recovered/Not Resolved]
  - Cardiac disorder [Not Recovered/Not Resolved]

NARRATIVE: CASE EVENT DATE: 20241001
